FAERS Safety Report 4540818-8 (Version None)
Quarter: 2004Q4

REPORT INFORMATION
  Report Type: 
  Country: None (occurrence: None)
  Receive Date: 20041229
  Receipt Date: 20041217
  Transmission Date: 20050328
  Serious: Yes (Hospitalization)
  Sender: FDA-Public Use
  Company Number: US-JNJFOC-20041205328

PATIENT
  Sex: Male

DRUGS (7)
  1. RISPERDAL [Suspect]
     Route: 049
  2. RISPERDAL [Suspect]
     Indication: SCHIZOPHRENIA
     Route: 049
  3. RISPERDAL CONSTA [Suspect]
     Indication: SCHIZOPHRENIA
     Route: 030
  4. PLAVIX [Concomitant]
  5. WELLBUTRIN [Concomitant]
     Indication: SMOKING CESSATION THERAPY
  6. PROTONIX [Concomitant]
     Indication: GASTROOESOPHAGEAL REFLUX DISEASE
  7. TEGRETOL [Concomitant]
     Indication: DRUG THERAPY

REACTIONS (5)
  - FREEZING PHENOMENON [None]
  - INJECTION SITE PAIN [None]
  - POLYDIPSIA [None]
  - SCHIZOPHRENIA [None]
  - TREATMENT NONCOMPLIANCE [None]
